FAERS Safety Report 15553707 (Version 1)
Quarter: 2018Q4

REPORT INFORMATION
  Report Type: Spontaneous
  Country: FR (occurrence: FR)
  Receive Date: 20181026
  Receipt Date: 20181026
  Transmission Date: 20190205
  Serious: Yes (Other)
  Sender: FDA-Public Use
  Company Number: FR-EMD SERONO-9048269

PATIENT
  Sex: Female

DRUGS (1)
  1. REBIF [Suspect]
     Active Substance: INTERFERON BETA-1A
     Indication: PRODUCT USED FOR UNKNOWN INDICATION

REACTIONS (6)
  - Nephrolithiasis [Unknown]
  - Fatigue [Unknown]
  - Chest pain [Unknown]
  - Urinary tract infection [Unknown]
  - Hernia [Unknown]
  - Adenoma benign [Unknown]

NARRATIVE: CASE EVENT DATE: 2017
